FAERS Safety Report 9611791 (Version 1)
Quarter: 2013Q4

REPORT INFORMATION
  Report Type: Spontaneous
  Country: US (occurrence: US)
  Receive Date: 20131010
  Receipt Date: 20131010
  Transmission Date: 20140711
  Serious: No
  Sender: FDA-Public Use
  Company Number: US-PFIZER INC-2013290970

PATIENT
  Age: 61 Year
  Sex: Female
  Weight: 59.4 kg

DRUGS (3)
  1. CHANTIX [Suspect]
     Indication: SMOKING CESSATION THERAPY
     Dosage: 0.5 MG, 1X/DAY
     Route: 048
     Dates: start: 2010, end: 2010
  2. CHANTIX [Suspect]
     Dosage: UNK
     Route: 048
     Dates: start: 2010, end: 2010
  3. CARDIAZEM [Concomitant]
     Indication: HYPERTENSION
     Dosage: 420 MG, UNK

REACTIONS (1)
  - Tongue blistering [Unknown]
